FAERS Safety Report 7353351-5 (Version None)
Quarter: 2011Q1

REPORT INFORMATION
  Report Type: 
  Country: None (occurrence: None)
  Receive Date: 20110310
  Receipt Date: 20110310
  Transmission Date: 20110831
  Serious: Yes (Other)
  Sender: FDA-Public Use
  Company Number: None

PATIENT
  Age: 76 Year
  Sex: Female
  Weight: 39.9165 kg

DRUGS (2)
  1. LIPITOR [Suspect]
     Indication: BLOOD CHOLESTEROL INCREASED
     Dosage: 1 PER DAY
     Dates: start: 20010101
  2. ASPIRIN [Suspect]
     Indication: VASCULAR GRAFT
     Dosage: 1 PER DAY
     Dates: start: 20010101

REACTIONS (4)
  - NAUSEA [None]
  - DECREASED APPETITE [None]
  - WEIGHT DECREASED [None]
  - DEAFNESS [None]
